FAERS Safety Report 8321939-0 (Version None)
Quarter: 2012Q2

REPORT INFORMATION
  Report Type: 
  Country: None (occurrence: None)
  Receive Date: 20120430
  Receipt Date: 20120418
  Transmission Date: 20120825
  Serious: Yes (Death, Hospitalization, Other)
  Sender: FDA-Public Use
  Company Number: JP-SANOFI-AVENTIS-2012SA023192

PATIENT
  Age: 78 Year
  Sex: Male

DRUGS (11)
  1. FLUOROURACIL [Interacting]
     Dosage: CONTINUOUS INFUSION (FOLFOX 4)
     Route: 065
  2. CIPROFLOXACIN [Concomitant]
  3. FLUOROURACIL [Interacting]
     Indication: RECTAL CANCER
     Route: 065
     Dates: start: 20101001
  4. METHYLPREDNISOLONE [Concomitant]
  5. PREDNISOLONE [Concomitant]
  6. IMIPENEM AND CILASTATIN SODIUM [Concomitant]
  7. OXALIPLATIN [Suspect]
     Indication: RECTAL CANCER
     Dosage: I.V INFUSION SOLUTION
     Route: 041
     Dates: start: 20101001
  8. CEFEPIME HYDROCHLORIDE [Concomitant]
  9. WARFARIN SODIUM [Interacting]
     Indication: RECTAL CANCER
     Route: 065
  10. LEUCOVORIN CALCIUM [Concomitant]
     Indication: RECTAL CANCER
     Dates: start: 20101001
  11. ALL OTHER THERAPEUTIC PRODUCTS [Suspect]
     Indication: RECTAL CANCER
     Dosage: TOTAL 3 CYCLES
     Route: 041
     Dates: start: 20101001

REACTIONS (3)
  - OESOPHAGEAL ULCER HAEMORRHAGE [None]
  - INTERSTITIAL LUNG DISEASE [None]
  - DRUG INTERACTION [None]
